FAERS Safety Report 16821797 (Version 1)
Quarter: 2019Q3

REPORT INFORMATION
  Report Type: Spontaneous
  Country: GB (occurrence: GB)
  Receive Date: 20190918
  Receipt Date: 20190918
  Transmission Date: 20191005
  Serious: Yes (Other)
  Sender: FDA-Public Use
  Company Number: GB-MYLANLABS-2019M1086165

PATIENT
  Age: 66 Year
  Sex: Female
  Weight: 84 kg

DRUGS (12)
  1. BISOPROLOL [Concomitant]
     Active Substance: BISOPROLOL
     Dosage: 1 DOSAGE FORM, QD
     Dates: start: 20181012
  2. GLYCERYL TRINITRATE [Concomitant]
     Active Substance: NITROGLYCERIN
     Dosage: PUFF
     Dates: start: 20190325
  3. BETNOVATE [Concomitant]
     Active Substance: BETAMETHASONE
     Dosage: TWICE A DAY
     Dates: start: 20181017
  4. ORTHO-GYNEST [Concomitant]
     Active Substance: ESTRIOL
     Dosage: 2 DOSAGE FORM, QW
     Dates: start: 20180302
  5. DICLOFENAC DIETHYLAMINE [Concomitant]
     Active Substance: DICLOFENAC DIETHYLAMINE
     Dosage: 3 DOSAGE FORM, QD
     Dates: start: 20180302
  6. ACETYLSALICYLIC ACID [Concomitant]
     Active Substance: ASPIRIN
     Dosage: AFTER FOOD.
     Dates: start: 20190325, end: 20190325
  7. LEVETIRACETAM. [Concomitant]
     Active Substance: LEVETIRACETAM
     Dosage: 2 DOSAGE FORM, QD
     Dates: start: 20180824
  8. CLOPIDOGREL [Concomitant]
     Active Substance: CLOPIDOGREL BISULFATE
     Dosage: 1 DOSAGE FORM, QD
     Dates: start: 20190325
  9. RAMIPRIL. [Suspect]
     Active Substance: RAMIPRIL
     Indication: PRODUCT USED FOR UNKNOWN INDICATION
     Dosage: 1.25 MILLIGRAM, QD
     Dates: start: 20190402
  10. LANSOPRAZOLE. [Concomitant]
     Active Substance: LANSOPRAZOLE
     Dosage: 1 DOSAGE FORM, QD
     Dates: start: 20190325
  11. RIVAROXABAN [Concomitant]
     Active Substance: RIVAROXABAN
     Dosage: 1 DOSAGE FORM, QD
     Dates: start: 20190325
  12. ATORVASTATIN [Concomitant]
     Active Substance: ATORVASTATIN
     Dosage: 1 DOSAGE FORM, QD
     Dates: start: 20190325

REACTIONS (2)
  - Haematuria [Recovered/Resolved]
  - Back pain [Unknown]

NARRATIVE: CASE EVENT DATE: 20190403
